FAERS Safety Report 17543556 (Version 1)
Quarter: 2020Q1

REPORT INFORMATION
  Report Type: Spontaneous
  Country: DE (occurrence: DE)
  Receive Date: 20200316
  Receipt Date: 20200316
  Transmission Date: 20200409
  Serious: Yes (Hospitalization)
  Sender: FDA-Public Use
  Company Number: DE-TEVA-2020-DE-1200381

PATIENT
  Age: 30 Year
  Sex: Male

DRUGS (4)
  1. LORAZEPAM. [Suspect]
     Active Substance: LORAZEPAM
     Route: 065
  2. QUETIAPIN [Suspect]
     Active Substance: QUETIAPINE
     Dosage: 2-0-1-2
  3. NEBIVOLOL. [Concomitant]
     Active Substance: NEBIVOLOL
     Dosage: 1.25 MILLIGRAM DAILY;
  4. ARIPIPRAZOL [Suspect]
     Active Substance: ARIPIPRAZOLE
     Dosage: 15 MILLIGRAM DAILY;

REACTIONS (4)
  - Anxiety [Unknown]
  - Paraesthesia [Unknown]
  - Nervousness [Unknown]
  - Agitation [Unknown]
